FAERS Safety Report 11607796 (Version 1)
Quarter: 2015Q4

REPORT INFORMATION
  Report Type: Report from Study
  Country: US (occurrence: US)
  Receive Date: 20151007
  Receipt Date: 20151007
  Transmission Date: 20160304
  Serious: Yes (Other)
  Sender: FDA-Public Use
  Company Number: US-JNJFOC-20151001054

PATIENT
  Age: 20 Year
  Sex: Male
  Weight: 60.78 kg

DRUGS (4)
  1. FOLIC ACID. [Concomitant]
     Active Substance: FOLIC ACID
     Route: 065
  2. METHOTREXATE [Suspect]
     Active Substance: METHOTREXATE
     Indication: PRODUCT USED FOR UNKNOWN INDICATION
     Route: 065
  3. REMICADE [Suspect]
     Active Substance: INFLIXIMAB
     Indication: PSORIASIS
     Dosage: 7TH TREATMENT, NO.OF VIALS USED WERE 3
     Route: 042
     Dates: start: 20150601
  4. REMICADE [Suspect]
     Active Substance: INFLIXIMAB
     Indication: PSORIASIS
     Route: 042
     Dates: start: 20140502

REACTIONS (41)
  - Rectal haemorrhage [Unknown]
  - Weight decreased [Unknown]
  - Dyspnoea [Unknown]
  - Melaena [Unknown]
  - Constipation [Unknown]
  - Rash [Unknown]
  - Pyrexia [Unknown]
  - Palpitations [Unknown]
  - Photosensitivity reaction [Unknown]
  - Rash [Unknown]
  - Rash [Unknown]
  - Ocular hyperaemia [Unknown]
  - Wheezing [Unknown]
  - Chest pain [Unknown]
  - Exercise tolerance decreased [Unknown]
  - Raynaud^s phenomenon [Unknown]
  - Immunodeficiency [Unknown]
  - Visual impairment [Unknown]
  - Cough [Unknown]
  - Chills [Unknown]
  - Night sweats [Unknown]
  - Eye pain [Unknown]
  - Abdominal pain [Unknown]
  - Dysuria [Unknown]
  - Alopecia [Unknown]
  - Muscular weakness [Unknown]
  - Psoriatic arthropathy [Unknown]
  - Haemoptysis [Unknown]
  - Fatigue [Unknown]
  - Mouth ulceration [Unknown]
  - Paraesthesia [Unknown]
  - Arthralgia [Unknown]
  - Headache [Unknown]
  - Dysphagia [Unknown]
  - Diarrhoea [Unknown]
  - Skin tightness [Unknown]
  - Haematuria [Unknown]
  - Psoriasis [Unknown]
  - Dry eye [Unknown]
  - Blood test abnormal [Unknown]
  - Pollakiuria [Unknown]

NARRATIVE: CASE EVENT DATE: 20140502
